FAERS Safety Report 21408530 (Version 2)
Quarter: 2024Q1

REPORT INFORMATION
  Report Type: Spontaneous
  Country: US (occurrence: US)
  Receive Date: 20221004
  Receipt Date: 20240325
  Transmission Date: 20240409
  Serious: Yes (Other)
  Sender: FDA-Public Use
  Company Number: US-ELI_LILLY_AND_COMPANY-US202209012566

PATIENT
  Age: 82 Year
  Sex: Male

DRUGS (3)
  1. CIALIS [Suspect]
     Active Substance: TADALAFIL
     Indication: Erectile dysfunction
     Dosage: 5 MG, DAILY
     Route: 065
  2. CIALIS [Suspect]
     Active Substance: TADALAFIL
     Indication: Benign prostatic hyperplasia
     Dosage: 20 MG, EVERY 24 HOURS
     Route: 048
  3. CIALIS [Suspect]
     Active Substance: TADALAFIL
     Indication: Micturition disorder

REACTIONS (5)
  - Dementia Alzheimer^s type [Unknown]
  - Erectile dysfunction [Unknown]
  - Suspected product tampering [Unknown]
  - Drug ineffective [Unknown]
  - Prescribed overdose [Unknown]
